FAERS Safety Report 4388922-1 (Version None)
Quarter: 2004Q2

REPORT INFORMATION
  Report Type: 
  Country: None (occurrence: None)
  Receive Date: 20040628
  Receipt Date: 20040610
  Transmission Date: 20050107
  Serious: Yes (Hospitalization)
  Sender: FDA-Public Use
  Company Number: 2004-FF-00260FF

PATIENT
  Age: 80 Year
  Sex: Male

DRUGS (6)
  1. JOSIR (TAMSULOSIN) (KAR) [Suspect]
     Indication: POLLAKIURIA
     Dosage: 0.4 MG (0.4 MG) PO
     Route: 048
     Dates: start: 20040326, end: 20040329
  2. ISORYTHM (DISOPYRAMIDE) (NR) [Concomitant]
  3. KARDEGIC (NR) [Concomitant]
  4. FENOFIBRATE [Concomitant]
  5. ART (DIACEREIN) (NR) [Concomitant]
  6. DOLIPRANE (PARACETAMOL) (NR) [Concomitant]

REACTIONS (4)
  - HYPERHIDROSIS [None]
  - HYPOTONIA [None]
  - MALAISE [None]
  - SYNCOPE VASOVAGAL [None]
